FAERS Safety Report 7802568-1 (Version None)
Quarter: 2011Q4

REPORT INFORMATION
  Report Type: 
  Country: None (occurrence: None)
  Receive Date: 20111005
  Receipt Date: 20110923
  Transmission Date: 20120403
  Serious: Yes (Hospitalization)
  Sender: FDA-Public Use
  Company Number: DSA_47713_2011

PATIENT
  Age: 80 Year
  Sex: Female

DRUGS (1)
  1. VENLAFAXINE [Suspect]
     Indication: DYSTHYMIC DISORDER
     Dosage: (225 MG QD), (150 MG QD)

REACTIONS (6)
  - RESPIRATORY DISTRESS [None]
  - EOSINOPHILIC PNEUMONIA ACUTE [None]
  - PSYCHOMOTOR RETARDATION [None]
  - REFUSAL OF TREATMENT BY PATIENT [None]
  - PANCREATITIS ACUTE [None]
  - ACUTE LUNG INJURY [None]
